FAERS Safety Report 18939371 (Version 1)
Quarter: 2021Q1

REPORT INFORMATION
  Report Type: Spontaneous
  Country: US (occurrence: US)
  Receive Date: 20210224
  Receipt Date: 20210224
  Transmission Date: 20210420
  Serious: Yes (Hospitalization)
  Sender: FDA-Public Use
  Company Number: None

PATIENT
  Age: 56 Year
  Sex: Male

DRUGS (1)
  1. REPATHA [Suspect]
     Active Substance: EVOLOCUMAB
     Indication: HYPERLIPIDAEMIA
     Route: 058
     Dates: start: 20201026

REACTIONS (6)
  - Coronary arterial stent insertion [None]
  - COVID-19 immunisation [None]
  - Balance disorder [None]
  - Product dose omission issue [None]
  - Influenza like illness [None]
  - Pain in extremity [None]
